FAERS Safety Report 9450860 (Version 1)
Quarter: 2013Q3

REPORT INFORMATION
  Report Type: Spontaneous
  Country: FR (occurrence: FR)
  Receive Date: 20130809
  Receipt Date: 20130809
  Transmission Date: 20140515
  Serious: Yes (Death, Hospitalization)
  Sender: FDA-Public Use
  Company Number: FR-INCYTE CORPORATION-2013IN001743

PATIENT
  Age: 54 Year
  Sex: Female

DRUGS (2)
  1. JAKAVI [Suspect]
     Indication: MYELOFIBROSIS
     Dosage: 20 MG, BID
     Route: 048
     Dates: start: 20130521, end: 20130622
  2. HYDREA [Concomitant]
     Dosage: UNK
     Dates: start: 20130708, end: 20130710

REACTIONS (4)
  - Septic shock [Fatal]
  - Multi-organ failure [Fatal]
  - Lung disorder [Fatal]
  - Pancytopenia [Not Recovered/Not Resolved]
